FAERS Safety Report 4716532-2 (Version None)
Quarter: 2005Q3

REPORT INFORMATION
  Report Type: 
  Country: None (occurrence: None)
  Receive Date: 20050714
  Receipt Date: 20050701
  Transmission Date: 20060218
  Serious: Yes (Other)
  Sender: FDA-Public Use
  Company Number: 2005091547

PATIENT
  Age: 34 Year
  Sex: Female

DRUGS (3)
  1. DETRUSITOL SR (TOLTERODINE) [Suspect]
     Indication: BLADDER PAIN
     Dosage: 2 MG (2  MG), ORAL
     Route: 048
     Dates: start: 20050510, end: 20050613
  2. DETRUSITOL SR (TOLTERODINE) [Suspect]
     Indication: BLADDER SPASM
     Dosage: 2 MG (2  MG), ORAL
     Route: 048
     Dates: start: 20050510, end: 20050613
  3. FLUOXETINE HCL [Concomitant]

REACTIONS (3)
  - DYSPNOEA [None]
  - SLEEP DISORDER [None]
  - TACHYCARDIA [None]
